FAERS Safety Report 7002446-4 (Version None)
Quarter: 2010Q3

REPORT INFORMATION
  Report Type: 
  Country: None (occurrence: None)
  Receive Date: 20100920
  Receipt Date: 20100909
  Transmission Date: 20110219
  Serious: Yes (Hospitalization)
  Sender: FDA-Public Use
  Company Number: US-BRISTOL-MYERS SQUIBB COMPANY-15274574

PATIENT
  Age: 24 Year
  Sex: Female

DRUGS (1)
  1. AMPICILLIN SODIUM [Suspect]
     Indication: ANTIBIOTIC PROPHYLAXIS
     Route: 042

REACTIONS (4)
  - CAESAREAN SECTION [None]
  - JARISCH-HERXHEIMER REACTION [None]
  - PREGNANCY [None]
  - PREMATURE LABOUR [None]
